FAERS Safety Report 10024172 (Version 1)
Quarter: 2014Q1

REPORT INFORMATION
  Report Type: Spontaneous
  Country: US (occurrence: US)
  Receive Date: 20140320
  Receipt Date: 20140320
  Transmission Date: 20141002
  Serious: No
  Sender: FDA-Public Use
  Company Number: US-PFIZER INC-2014077880

PATIENT
  Age: 45 Year
  Sex: Female
  Weight: 45.35 kg

DRUGS (1)
  1. VFEND [Suspect]
     Indication: ANTIFUNGAL TREATMENT
     Dosage: 200 MG, 2X/DAY
     Route: 048
     Dates: start: 20071009, end: 20100208

REACTIONS (1)
  - Liver function test abnormal [Recovered/Resolved]
